FAERS Safety Report 8494686-2 (Version None)
Quarter: 2012Q3

REPORT INFORMATION
  Report Type: 
  Country: None (occurrence: None)
  Receive Date: 20120709
  Receipt Date: 20120702
  Transmission Date: 20120928
  Serious: Yes (Hospitalization)
  Sender: FDA-Public Use
  Company Number: US-BAYER-2011-018320

PATIENT
  Age: 35 Year
  Sex: Female
  Weight: 89.569 kg

DRUGS (12)
  1. FLUOROMETHOLONE [Concomitant]
     Route: 047
  2. CHROMIUM CHLORIDE [Concomitant]
  3. KEPPRA [Concomitant]
  4. NEXIUM [Concomitant]
  5. METRONIDAZOLE [Concomitant]
     Route: 067
  6. SENNA-MINT WAF [Concomitant]
  7. CIPROFLOXACIN [Concomitant]
     Indication: URINARY TRACT INFECTION
  8. PRILOSEC [Concomitant]
  9. METFORMIN HCL [Concomitant]
     Indication: POLYCYSTIC OVARIES
     Dosage: 500 MG, BID
     Dates: start: 20061001, end: 20090301
  10. MULTI-VITAMINS [Concomitant]
  11. FLORASTOR [Concomitant]
  12. YAZ [Suspect]
     Indication: CONTRACEPTION
     Dates: start: 20080211, end: 20090213

REACTIONS (1)
  - CEREBROVASCULAR ACCIDENT [None]
